FAERS Safety Report 24935068 (Version 2)
Quarter: 2025Q1

REPORT INFORMATION
  Report Type: Spontaneous
  Country: AU (occurrence: AU)
  Receive Date: 20250206
  Receipt Date: 20250326
  Transmission Date: 20250408
  Serious: Yes (Other)
  Sender: SANDOZ
  Company Number: AU-002147023-NVSC2021AU042009

PATIENT
  Sex: Male
  Weight: 98 kg

DRUGS (9)
  1. RITALIN [Suspect]
     Active Substance: METHYLPHENIDATE HYDROCHLORIDE
     Dosage: 1.5 DOSAGE FORM, BID
     Route: 065
  2. RITALIN [Suspect]
     Active Substance: METHYLPHENIDATE HYDROCHLORIDE
     Indication: Attention deficit hyperactivity disorder
     Dosage: 1.5 DF, TID
     Route: 065
  3. RITALIN [Suspect]
     Active Substance: METHYLPHENIDATE HYDROCHLORIDE
     Dosage: UNK, BID (1.25 AT WORK, 1.5 AT HOME)
     Route: 065
  4. RITALIN [Suspect]
     Active Substance: METHYLPHENIDATE HYDROCHLORIDE
     Dosage: 2 DF, TID (TOTAL OF SIX TABLETS PER DAY)
     Route: 065
  5. RITALIN [Suspect]
     Active Substance: METHYLPHENIDATE HYDROCHLORIDE
     Dosage: UNK, QD (3 DOSE)
     Route: 065
  6. RITALIN [Suspect]
     Active Substance: METHYLPHENIDATE HYDROCHLORIDE
     Dosage: UNK, QD (4.5 DOSE)
     Route: 065
  7. RITALIN [Suspect]
     Active Substance: METHYLPHENIDATE HYDROCHLORIDE
     Dosage: UNK, QD (6 DOSE)
     Route: 065
  8. RITALIN [Suspect]
     Active Substance: METHYLPHENIDATE HYDROCHLORIDE
     Dosage: UNK, BID (1.25 AT WORK, 1.5 AT HOME)
     Route: 065
  9. RITALIN [Suspect]
     Active Substance: METHYLPHENIDATE HYDROCHLORIDE
     Route: 065

REACTIONS (12)
  - Sexual dysfunction [Not Recovered/Not Resolved]
  - Drug dependence [Unknown]
  - Memory impairment [Unknown]
  - Prostatic disorder [Unknown]
  - Headache [Unknown]
  - Paraesthesia [Unknown]
  - Disturbance in attention [Unknown]
  - Sleep disorder [Unknown]
  - Brain fog [Unknown]
  - Head discomfort [Unknown]
  - Fatigue [Not Recovered/Not Resolved]
  - Anxiety [Not Recovered/Not Resolved]

NARRATIVE: CASE EVENT DATE: 20140101
